FAERS Safety Report 19748861 (Version 16)
Quarter: 2022Q3

REPORT INFORMATION
  Report Type: Report from Study
  Country: US (occurrence: US)
  Receive Date: 20210826
  Receipt Date: 20220815
  Transmission Date: 20221027
  Serious: Yes (Other)
  Sender: FDA-Public Use
  Company Number: US-NOVARTISPH-NVSC2021US192973

PATIENT
  Age: 35 Year
  Sex: Female

DRUGS (4)
  1. KESIMPTA [Suspect]
     Active Substance: OFATUMUMAB
     Indication: Multiple sclerosis
     Dosage: UNK
     Route: 065
     Dates: start: 20210801
  2. KESIMPTA [Suspect]
     Active Substance: OFATUMUMAB
     Dosage: UNK
     Route: 058
     Dates: start: 20210810
  3. KESIMPTA [Suspect]
     Active Substance: OFATUMUMAB
     Dosage: UNK, QMO
     Route: 058
     Dates: start: 202108
  4. KESIMPTA [Suspect]
     Active Substance: OFATUMUMAB
     Dosage: UNK, QMO
     Route: 058
     Dates: start: 202108

REACTIONS (28)
  - Fall [Not Recovered/Not Resolved]
  - Multiple sclerosis [Not Recovered/Not Resolved]
  - Limb discomfort [Not Recovered/Not Resolved]
  - Balance disorder [Not Recovered/Not Resolved]
  - Band sensation [Unknown]
  - Burning sensation [Unknown]
  - Hypoaesthesia [Unknown]
  - Sleep disorder [Unknown]
  - Visual impairment [Not Recovered/Not Resolved]
  - Migraine with aura [Unknown]
  - Eye pain [Not Recovered/Not Resolved]
  - Haemorrhoids [Recovering/Resolving]
  - Constipation [Recovering/Resolving]
  - Fatigue [Not Recovered/Not Resolved]
  - Muscular weakness [Unknown]
  - Muscle spasms [Unknown]
  - Joint stiffness [Unknown]
  - Stress [Unknown]
  - Back pain [Unknown]
  - Pain [Unknown]
  - Headache [Not Recovered/Not Resolved]
  - Injection site pain [Recovered/Resolved]
  - Arthritis [Not Recovered/Not Resolved]
  - Gait inability [Not Recovered/Not Resolved]
  - Pelvic pain [Unknown]
  - Vitamin D decreased [Recovering/Resolving]
  - Vitamin B complex deficiency [Unknown]
  - Blood magnesium decreased [Unknown]

NARRATIVE: CASE EVENT DATE: 20210810
